FAERS Safety Report 25785474 (Version 1)
Quarter: 2025Q3

REPORT INFORMATION
  Report Type: Report from Study
  Country: AR (occurrence: AR)
  Receive Date: 20250910
  Receipt Date: 20250910
  Transmission Date: 20251021
  Serious: Yes (Other)
  Sender: EMD SERONO INC
  Company Number: AR-Merck Healthcare KGaA-2025044984

PATIENT
  Sex: Female

DRUGS (1)
  1. BAVENCIO [Suspect]
     Active Substance: AVELUMAB
     Indication: Product used for unknown indication

REACTIONS (1)
  - Adrenalitis [Recovering/Resolving]
